FAERS Safety Report 23440998 (Version 2)
Quarter: 2024Q1

REPORT INFORMATION
  Report Type: Report from Study
  Country: BR (occurrence: BR)
  Receive Date: 20240125
  Receipt Date: 20240131
  Transmission Date: 20240410
  Serious: Yes (Other)
  Sender: FDA-Public Use
  Company Number: BR-JNJFOC-20240150249

PATIENT
  Age: 33 Year
  Sex: Female
  Weight: 57 kg

DRUGS (4)
  1. SPRAVATO [Suspect]
     Active Substance: ESKETAMINE
     Indication: Major depression
     Dates: start: 202308, end: 202308
  2. SPRAVATO [Suspect]
     Active Substance: ESKETAMINE
     Indication: Suicidal ideation
     Dates: start: 20231212, end: 20231212
  3. SPRAVATO [Suspect]
     Active Substance: ESKETAMINE
     Dates: start: 20231226, end: 20231226
  4. SPRAVATO [Suspect]
     Active Substance: ESKETAMINE
     Dates: start: 20240109, end: 20240109

REACTIONS (5)
  - Suicidal ideation [Recovered/Resolved]
  - Major depression [Unknown]
  - Anxiety [Not Recovered/Not Resolved]
  - Dizziness [Unknown]
  - Drug ineffective [Unknown]

NARRATIVE: CASE EVENT DATE: 20230101
